FAERS Safety Report 25198742 (Version 2)
Quarter: 2025Q2

REPORT INFORMATION
  Report Type: Spontaneous
  Country: CO (occurrence: CO)
  Receive Date: 20250415
  Receipt Date: 20250605
  Transmission Date: 20250716
  Serious: No
  Sender: BECTON DICKINSON
  Company Number: CO-BECTON DICKINSON-CO-BD-25-000152

PATIENT

DRUGS (1)
  1. CHLORAPREP [Suspect]
     Active Substance: CHLORHEXIDINE GLUCONATE\ISOPROPYL ALCOHOL
     Indication: Product used for unknown indication
     Route: 065

REACTIONS (1)
  - Device defective [Unknown]
